FAERS Safety Report 7416578-X (Version None)
Quarter: 2011Q2

REPORT INFORMATION
  Report Type: 
  Country: None (occurrence: None)
  Receive Date: 20110415
  Receipt Date: 20110408
  Transmission Date: 20111010
  Serious: Yes (Hospitalization)
  Sender: FDA-Public Use
  Company Number: US-BIOGENIDEC-2010BI010954

PATIENT
  Age: 66 Year
  Sex: Male
  Weight: 70 kg

DRUGS (33)
  1. ASPIRIN [Concomitant]
     Indication: ISCHAEMIC HEART DISEASE PROPHYLAXIS
     Route: 048
     Dates: start: 20070626
  2. CALCIUM CARBONATE [Concomitant]
     Indication: ANTACID THERAPY
     Route: 048
     Dates: start: 20100322
  3. FLUTICAS SALMETEROL [Concomitant]
     Indication: ASTHMA
     Route: 055
  4. POLYETHYLENE GLYCOL [Concomitant]
     Indication: CONSTIPATION
     Route: 048
     Dates: start: 20100308
  5. METHYLPHENIDATE HCL [Concomitant]
     Indication: FATIGUE
     Route: 048
     Dates: start: 20071127
  6. ASCORBIC ACID [Concomitant]
     Indication: SUPPLEMENTATION THERAPY
     Route: 048
     Dates: start: 20090302
  7. NIACIN [Concomitant]
     Indication: HYPERCHOLESTEROLAEMIA
     Route: 048
     Dates: start: 20100127
  8. BACLOFEN [Concomitant]
     Indication: MUSCLE SPASTICITY
     Route: 048
     Dates: start: 20080206
  9. HYDROCORTISONE [Concomitant]
     Route: 061
  10. CAPSAICIN [Concomitant]
     Route: 061
  11. GABAPENTIN [Concomitant]
     Indication: NEURALGIA
     Route: 048
     Dates: start: 20070626
  12. IPRATROPIUM BROMIDE [Concomitant]
     Route: 055
  13. LIDOCAINE [Concomitant]
     Route: 062
  14. MOMETASONE [Concomitant]
     Indication: BRONCHITIS
     Dosage: DOSE UNIT:220
     Route: 055
     Dates: start: 20091001
  15. CARVEDILOL [Concomitant]
     Indication: HYPERTENSION
     Route: 048
     Dates: start: 20070626
  16. DOCUSATE [Concomitant]
     Indication: CONSTIPATION
     Route: 048
     Dates: start: 20090302
  17. BISACODYL [Concomitant]
     Indication: CONSTIPATION
     Route: 054
     Dates: start: 20090302
  18. OMEPRAZOLE [Concomitant]
     Indication: GASTROOESOPHAGEAL REFLUX DISEASE
     Route: 048
     Dates: start: 20071127
  19. ACETAMINOPHEN [Concomitant]
     Indication: PAIN
     Route: 048
     Dates: start: 20090210
  20. FAMCICLOVIR [Concomitant]
     Indication: VIRAL INFECTION
     Route: 048
     Dates: start: 20100319
  21. TYSABRI [Suspect]
     Indication: MULTIPLE SCLEROSIS
     Route: 042
     Dates: start: 20090828
  22. TAMSULOSIN [Concomitant]
     Indication: BENIGN PROSTATIC HYPERPLASIA
     Route: 048
     Dates: start: 20070626
  23. ALBUTEROL [Concomitant]
     Indication: BRONCHITIS
     Route: 055
     Dates: start: 20090623
  24. VIT D3 [Concomitant]
     Indication: OSTEOPOROSIS
     Route: 048
     Dates: start: 20100121
  25. CITALOPRAM HYDROBROMIDE [Concomitant]
     Indication: DEPRESSION
     Route: 048
     Dates: start: 20070626
  26. SELENIUM SULFIDE [Concomitant]
     Route: 061
  27. SENNOSIDES [Concomitant]
     Indication: CONSTIPATION
     Route: 048
     Dates: start: 20100305
  28. SIMVASTATIN [Concomitant]
     Indication: HYPERCHOLESTEROLAEMIA
     Route: 048
     Dates: start: 20070626
  29. MULTI-VITAMINS [Concomitant]
     Indication: SUPPLEMENTATION THERAPY
     Route: 048
     Dates: start: 20080626
  30. VICODIN [Concomitant]
     Indication: PAIN
     Route: 048
     Dates: start: 20080206
  31. BENAZEPRIL HYDROCHLORIDE [Concomitant]
     Indication: HYPERTENSION
     Route: 048
     Dates: start: 20070626
  32. MUPIROCIN [Concomitant]
     Route: 061
  33. TEMAZEPAM [Concomitant]
     Indication: INSOMNIA
     Route: 048
     Dates: start: 20070626

REACTIONS (2)
  - UROSEPSIS [None]
  - HAEMATURIA [None]
